FAERS Safety Report 15462888 (Version 3)
Quarter: 2019Q1

REPORT INFORMATION
  Report Type: Report from Study
  Country: CA (occurrence: CA)
  Receive Date: 20181004
  Receipt Date: 20190214
  Transmission Date: 20190417
  Serious: Yes (Death, Hospitalization)
  Sender: FDA-Public Use
  Company Number: CA-TOLMAR, INC.-2018CA009755

PATIENT

DRUGS (1)
  1. ELIGARD [Suspect]
     Active Substance: LEUPROLIDE ACETATE
     Indication: PROSTATE CANCER
     Dosage: 30 MG, GIVEN EVERY 16 WEEKS
     Route: 058
     Dates: start: 20160812

REACTIONS (2)
  - Blood creatinine increased [Unknown]
  - Prostate cancer [Fatal]

NARRATIVE: CASE EVENT DATE: 20180926
